FAERS Safety Report 24834934 (Version 1)
Quarter: 2025Q1

REPORT INFORMATION
  Report Type: Other
  Country: US (occurrence: US)
  Receive Date: 20250113
  Receipt Date: 20250113
  Transmission Date: 20250409
  Serious: No
  Sender: WOODWARD PHARMA SERVICES
  Company Number: US-WW-2025-39752248

PATIENT
  Age: 76 Year
  Sex: Male

DRUGS (4)
  1. FLUCONAZOLE [Suspect]
     Active Substance: FLUCONAZOLE
     Indication: Amoebiasis
     Route: 065
  2. FLUCYTOSINE [Suspect]
     Active Substance: FLUCYTOSINE
     Indication: Amoebiasis
     Route: 065
  3. MILTEFOSINE [Suspect]
     Active Substance: MILTEFOSINE
     Indication: Amoebiasis
     Route: 065
  4. ACALABRUTINIB [Concomitant]
     Active Substance: ACALABRUTINIB
     Indication: Chronic lymphocytic leukaemia
     Route: 065

REACTIONS (2)
  - Nausea [Unknown]
  - Product use in unapproved indication [Unknown]
